FAERS Safety Report 23055427 (Version 1)
Quarter: 2023Q4

REPORT INFORMATION
  Report Type: Spontaneous
  Country: US (occurrence: None)
  Receive Date: 20231010
  Receipt Date: 20231010
  Transmission Date: 20240110
  Serious: Yes (Hospitalization)
  Sender: FDA-Public Use
  Company Number: None

PATIENT
  Sex: Female

DRUGS (5)
  1. SILDENAFIL CITRATE [Suspect]
     Active Substance: SILDENAFIL CITRATE
     Indication: Pulmonary arterial hypertension
     Dosage: FREQUENCY : 3 TIMES A DAY;?
     Route: 048
     Dates: start: 202112
  2. FLOLAN STERILE DILUENT [Concomitant]
  3. DEVICE [Concomitant]
     Active Substance: DEVICE
  4. TREPROSTINIL [Concomitant]
     Active Substance: TREPROSTINIL
  5. OPSUMIT [Concomitant]
     Active Substance: MACITENTAN

REACTIONS (2)
  - Respiratory failure [None]
  - Hypoxia [None]
